FAERS Safety Report 19610956 (Version 2)
Quarter: 2021Q3

REPORT INFORMATION
  Report Type: Report from Study
  Country: US (occurrence: US)
  Receive Date: 20210726
  Receipt Date: 20210806
  Transmission Date: 20211014
  Serious: Yes (Other)
  Sender: FDA-Public Use
  Company Number: US-SEATTLE GENETICS-2021SGN02655

PATIENT
  Sex: Female

DRUGS (2)
  1. TUCATINIB [Suspect]
     Active Substance: TUCATINIB
     Indication: BREAST CANCER FEMALE
     Dosage: UNKNOWN
  2. CAPECITABINE. [Suspect]
     Active Substance: CAPECITABINE
     Indication: BREAST CANCER FEMALE
     Dosage: UNK

REACTIONS (14)
  - Somnolence [Unknown]
  - Hepatic enzyme increased [Unknown]
  - Rash macular [Unknown]
  - Tenderness [Unknown]
  - Nausea [Unknown]
  - Surgery [Unknown]
  - Apathy [Unknown]
  - Product dose omission issue [Unknown]
  - Vomiting [Unknown]
  - Illness [Unknown]
  - Femur fracture [Unknown]
  - Paraesthesia [Unknown]
  - Fatigue [Unknown]
  - Decreased appetite [Unknown]
